FAERS Safety Report 7490804-3 (Version None)
Quarter: 2011Q2

REPORT INFORMATION
  Report Type: 
  Country: None (occurrence: None)
  Receive Date: 20110519
  Receipt Date: 20110509
  Transmission Date: 20111010
  Serious: Yes (Other)
  Sender: FDA-Public Use
  Company Number: US-SANOFI-AVENTIS-2011SA030034

PATIENT
  Sex: Female

DRUGS (6)
  1. TAXOTERE [Suspect]
     Dosage: EVERY 3 WEEKS
     Route: 041
     Dates: start: 20051101, end: 20051101
  2. CYTOXAN [Suspect]
     Route: 042
     Dates: start: 20051101, end: 20051101
  3. TAXOTERE [Suspect]
     Indication: BREAST CANCER
     Dosage: EVERY 3 WEEKS
     Route: 041
     Dates: start: 20050701, end: 20050701
  4. ADRIAMYCIN PFS [Suspect]
     Route: 042
     Dates: start: 20051101, end: 20051101
  5. CYTOXAN [Suspect]
     Indication: BREAST CANCER
     Route: 042
     Dates: start: 20050701, end: 20050701
  6. ADRIAMYCIN PFS [Suspect]
     Indication: BREAST CANCER
     Route: 042
     Dates: start: 20050701, end: 20050701

REACTIONS (11)
  - ORTHOSTATIC TREMOR [None]
  - DYSTONIA [None]
  - NEUROPATHY PERIPHERAL [None]
  - NERVOUS SYSTEM DISORDER [None]
  - ATAXIA [None]
  - INTENTION TREMOR [None]
  - HEMIPARESIS [None]
  - PARAESTHESIA [None]
  - DYSAESTHESIA [None]
  - CEREBELLAR ATAXIA [None]
  - MUSCLE SPASMS [None]
